FAERS Safety Report 18618771 (Version 1)
Quarter: 2020Q4

REPORT INFORMATION
  Report Type: Report from Study
  Country: US (occurrence: US)
  Receive Date: 20201215
  Receipt Date: 20201215
  Transmission Date: 20210114
  Serious: Yes (Other)
  Sender: FDA-Public Use
  Company Number: US-JNJFOC-20200931509

PATIENT
  Age: 73 Year
  Sex: Female

DRUGS (5)
  1. SELEXIPAG [Suspect]
     Active Substance: SELEXIPAG
     Route: 065
  2. INFLUENZA VACCINE [Suspect]
     Active Substance: INFLUENZA VIRUS VACCINE
     Route: 065
     Dates: start: 20200915
  3. SELEXIPAG [Suspect]
     Active Substance: SELEXIPAG
     Dosage: IN AM
     Route: 065
     Dates: start: 20201117
  4. SELEXIPAG [Suspect]
     Active Substance: SELEXIPAG
     Indication: PULMONARY ARTERIAL HYPERTENSION
     Route: 065
     Dates: start: 20200915
  5. SELEXIPAG [Suspect]
     Active Substance: SELEXIPAG
     Dosage: IN PM
     Route: 065
     Dates: start: 20201117

REACTIONS (4)
  - Headache [Not Recovered/Not Resolved]
  - Atrial fibrillation [Not Recovered/Not Resolved]
  - Nausea [Unknown]
  - Pain [Unknown]
